FAERS Safety Report 19952682 (Version 1)
Quarter: 2021Q4

REPORT INFORMATION
  Report Type: Spontaneous
  Country: ES (occurrence: ES)
  Receive Date: 20211014
  Receipt Date: 20211014
  Transmission Date: 20220303
  Serious: Yes (Hospitalization)
  Sender: FDA-Public Use
  Company Number: None

PATIENT
  Age: 75 Year
  Sex: Male

DRUGS (8)
  1. ENALAPRIL [Suspect]
     Active Substance: ENALAPRIL
     Indication: Hypertension
     Dosage: 5.0 MG C/12 H
     Route: 048
     Dates: start: 20191022, end: 20200710
  2. PANTOPRAZOLE SODIUM [Concomitant]
     Active Substance: PANTOPRAZOLE SODIUM
     Indication: Product used for unknown indication
     Dosage: 20.0 MG C/24 H
     Route: 048
     Dates: start: 20191024
  3. SIMVASTATINA SANDOZ [Concomitant]
     Indication: Hypercholesterolaemia
     Dosage: 40.0 MG CE,28 TABLETS
     Route: 048
     Dates: start: 20181019
  4. LORATADINA MYLAN [Concomitant]
     Indication: Hypersensitivity
     Dosage: 10.0 MG DE,EFG TABLETS, 20 TABLETS
     Route: 048
     Dates: start: 20120817
  5. ACIDO ACETILSALICILICO ARISTO [Concomitant]
     Indication: Cerebrovascular disorder
     Dosage: 100.0 MG CO,30 TABLETS
     Route: 048
     Dates: start: 20120817
  6. TAMSULOSIN HYDROCHLORIDE [Concomitant]
     Active Substance: TAMSULOSIN HYDROCHLORIDE
     Indication: Benign prostatic hyperplasia
     Dosage: 0.4 MG C/24 H,?30 COMP LIBERA PRO REC
     Route: 048
     Dates: start: 20151224
  7. RANEXA [Concomitant]
     Active Substance: RANOLAZINE
     Indication: Chest pain
     Dosage: 500.0 MG COCE
     Route: 048
     Dates: start: 20161021
  8. PARACETAMOL TARBIS FARMA [Concomitant]
     Indication: Scoliosis
     Dosage: 1.0 G DECOCE, 20 TABLETS
     Route: 048
     Dates: start: 20190614

REACTIONS (1)
  - Pancreatitis acute [Recovered/Resolved]

NARRATIVE: CASE EVENT DATE: 20200627
